FAERS Safety Report 4538190-2 (Version None)
Quarter: 2004Q4

REPORT INFORMATION
  Report Type: 
  Country: None (occurrence: None)
  Receive Date: 20041221
  Receipt Date: 20041207
  Transmission Date: 20050328
  Serious: Yes (Hospitalization)
  Sender: FDA-Public Use
  Company Number: MEDI-0002572

PATIENT
  Age: 1 Month
  Sex: Male

DRUGS (5)
  1. SYNAGIS [Suspect]
     Indication: ANTIVIRAL PROPHYLAXIS
     Dosage: 1 IN 30 D, INTRAMUSCULAR
     Route: 030
     Dates: start: 20041102, end: 20041102
  2. LANOXIN [Concomitant]
  3. MULTIVITAMIN [Concomitant]
  4. SPIRONOLACTONE [Concomitant]
  5. IMPUGAN (FUROSEMIDE) [Concomitant]

REACTIONS (4)
  - OEDEMA [None]
  - OEDEMA PERIPHERAL [None]
  - RASH ERYTHEMATOUS [None]
  - URTICARIA [None]
